FAERS Safety Report 6402153-2 (Version None)
Quarter: 2009Q4

REPORT INFORMATION
  Report Type: 
  Country: None (occurrence: None)
  Receive Date: 20091015
  Receipt Date: 20091007
  Transmission Date: 20100525
  Serious: Yes (Other)
  Sender: FDA-Public Use
  Company Number: CH-TEVA-211873ISR

PATIENT
  Age: 54 Year
  Sex: Male
  Weight: 61 kg

DRUGS (7)
  1. CISPLATIN [Suspect]
     Indication: LARYNGEAL CANCER
     Route: 041
     Dates: start: 20080701, end: 20080801
  2. VALPROATE SODIUM [Concomitant]
     Indication: EPILEPSY
     Route: 048
  3. CARBAMAZEPINE [Concomitant]
     Indication: EPILEPSY
     Route: 048
  4. ESOMEPRAZOLE MAGNESIUM [Concomitant]
     Route: 048
  5. SIMVASTATIN [Concomitant]
     Route: 048
  6. ASASANTIN (ACETYLSALICYLIC ACID/DIPYRIDAMOLE) [Concomitant]
     Route: 048
  7. MORPHINE [Concomitant]
     Route: 048

REACTIONS (3)
  - HAEMOCHROMATOSIS [None]
  - IRON METABOLISM DISORDER [None]
  - SERUM FERRITIN INCREASED [None]
